FAERS Safety Report 4467651-X (Version None)
Quarter: 2004Q4

REPORT INFORMATION
  Report Type: 
  Country: None (occurrence: None)
  Receive Date: 20041001
  Receipt Date: 20040922
  Transmission Date: 20050328
  Serious: Yes (Other)
  Sender: FDA-Public Use
  Company Number: CIP04002091

PATIENT
  Age: 58 Year

DRUGS (3)
  1. ACTONEL [Suspect]
     Indication: OSTEOPOROSIS
     Dosage: 35 MG ONCE WEEKLY, ORAL
     Route: 048
     Dates: start: 20040201, end: 20040428
  2. IDEOS [Concomitant]
  3. HIDROSALURETIL [Concomitant]

REACTIONS (1)
  - EPISCLERITIS [None]
